FAERS Safety Report 4855946-7 (Version None)
Quarter: 2005Q4

REPORT INFORMATION
  Report Type: 
  Country: None (occurrence: None)
  Receive Date: 20051216
  Receipt Date: 20051206
  Transmission Date: 20060501
  Serious: Yes (Other)
  Sender: FDA-Public Use
  Company Number: US-JNJFOC-20051202841

PATIENT
  Sex: Female
  Weight: 83.92 kg

DRUGS (4)
  1. DURAGESIC-100 [Suspect]
     Route: 062
  2. DURAGESIC-100 [Suspect]
     Route: 062
  3. DURAGESIC-100 [Suspect]
     Route: 062
  4. NEURONTIN [Concomitant]
     Indication: DIABETIC NEUROPATHY
     Route: 048

REACTIONS (3)
  - ABASIA [None]
  - LETHARGY [None]
  - OVERDOSE [None]
